FAERS Safety Report 6986875-0 (Version None)
Quarter: 2010Q3

REPORT INFORMATION
  Report Type: 
  Country: None (occurrence: None)
  Receive Date: 20100915
  Receipt Date: 20090803
  Transmission Date: 20110219
  Serious: No
  Sender: FDA-Public Use
  Company Number: US-WYE-H10438609

PATIENT
  Sex: Female

DRUGS (9)
  1. PRISTIQ [Suspect]
     Indication: DEPRESSION
     Dosage: TITRATED UP TO 100 MG DAILY
     Route: 048
     Dates: start: 20080601
  2. ATENOLOL [Concomitant]
  3. OMEPRAZOLE [Concomitant]
  4. HYDROCHLOROTHIAZIDE [Concomitant]
  5. SEROQUEL [Concomitant]
  6. ABILIFY [Concomitant]
  7. L-METHYLFOLATE [Concomitant]
  8. LORAZEPAM [Concomitant]
  9. LAMICTAL [Concomitant]

REACTIONS (1)
  - ALOPECIA [None]
